FAERS Safety Report 7544268-1 (Version None)
Quarter: 2011Q2

REPORT INFORMATION
  Report Type: 
  Country: None (occurrence: None)
  Receive Date: 20110613
  Receipt Date: 20071101
  Transmission Date: 20111010
  Serious: Yes (Life-Threatening, Hospitalization, Other)
  Sender: FDA-Public Use
  Company Number: PHMT2007CA01860

PATIENT
  Sex: Male

DRUGS (1)
  1. SANDOSTATIN LAR [Suspect]
     Indication: CARCINOID TUMOUR
     Dosage: 20 MG, UNK
     Route: 030
     Dates: start: 20040601

REACTIONS (8)
  - DEEP VEIN THROMBOSIS [None]
  - DISEASE PROGRESSION [None]
  - LOCALISED OEDEMA [None]
  - ABDOMINAL ABSCESS [None]
  - ASTHENIA [None]
  - NAUSEA [None]
  - LIFE EXPECTANCY SHORTENED [None]
  - OEDEMA PERIPHERAL [None]
